FAERS Safety Report 23880927 (Version 2)
Quarter: 2024Q2

REPORT INFORMATION
  Report Type: Spontaneous
  Country: JP (occurrence: JP)
  Receive Date: 20240521
  Receipt Date: 20240613
  Transmission Date: 20240716
  Serious: Yes (Other)
  Sender: FDA-Public Use
  Company Number: JP-002147023-NVSJ2024JP005795

PATIENT
  Age: 76 Year
  Sex: Female

DRUGS (5)
  1. TAFINLAR [Suspect]
     Active Substance: DABRAFENIB MESYLATE
     Indication: Thyroid cancer
     Dosage: 300 MG
     Route: 048
     Dates: start: 20240418, end: 20240514
  2. TAFINLAR [Suspect]
     Active Substance: DABRAFENIB MESYLATE
     Dosage: 300 MG
     Route: 048
     Dates: start: 20240530
  3. MEKINIST [Suspect]
     Active Substance: TRAMETINIB DIMETHYL SULFOXIDE
     Indication: Thyroid cancer
     Dosage: 2 MG
     Route: 048
     Dates: start: 20240418, end: 20240514
  4. MEKINIST [Suspect]
     Active Substance: TRAMETINIB DIMETHYL SULFOXIDE
     Dosage: 2 MG
     Route: 048
     Dates: start: 20240530
  5. LOXOPROFEN SODIUM [Suspect]
     Active Substance: LOXOPROFEN SODIUM
     Indication: Back pain
     Dosage: UNK
     Route: 065
     Dates: start: 20240430

REACTIONS (3)
  - Anaemia [Recovered/Resolved]
  - Gastric ulcer haemorrhage [Unknown]
  - Back pain [Unknown]

NARRATIVE: CASE EVENT DATE: 20240430
